FAERS Safety Report 16243972 (Version 1)
Quarter: 2019Q2

REPORT INFORMATION
  Report Type: Spontaneous
  Country: US (occurrence: US)
  Receive Date: 20190426
  Receipt Date: 20190426
  Transmission Date: 20190711
  Serious: No
  Sender: FDA-Public Use
  Company Number: US-TEVA-2019-US-1039871

PATIENT
  Age: 57 Year
  Sex: Female

DRUGS (4)
  1. DIAZEPAM. [Suspect]
     Active Substance: DIAZEPAM
     Route: 065
  2. DIAZEPAM. [Suspect]
     Active Substance: DIAZEPAM
     Indication: MUSCLE SPASMS
     Route: 065
     Dates: start: 1991
  3. DIAZEPAM. [Suspect]
     Active Substance: DIAZEPAM
     Route: 065
     Dates: start: 1993
  4. IBUPROFEN. [Concomitant]
     Active Substance: IBUPROFEN
     Route: 065
     Dates: start: 1993

REACTIONS (2)
  - Anxiety [Unknown]
  - Drug intolerance [Unknown]

NARRATIVE: CASE EVENT DATE: 1991
